FAERS Safety Report 20198682 (Version 1)
Quarter: 2021Q4

REPORT INFORMATION
  Report Type: Spontaneous
  Country: US (occurrence: None)
  Receive Date: 20211216
  Receipt Date: 20211216
  Transmission Date: 20220304
  Serious: Yes (Hospitalization)
  Sender: FDA-Public Use
  Company Number: None

PATIENT
  Age: 85 Year
  Sex: Female
  Weight: 62.5 kg

DRUGS (3)
  1. BAMLANIVIMAB\ETESEVIMAB [Suspect]
     Active Substance: BAMLANIVIMAB\ETESEVIMAB
     Indication: COVID-19
  2. BAMLANIVIMAB [Concomitant]
     Active Substance: BAMLANIVIMAB
     Dates: start: 20211215, end: 20211215
  3. ETESEVIMAB [Concomitant]
     Active Substance: ETESEVIMAB
     Dates: start: 20211215, end: 20211215

REACTIONS (1)
  - Back pain [None]

NARRATIVE: CASE EVENT DATE: 20211215
